FAERS Safety Report 5995034-X (Version None)
Quarter: 2008Q4

REPORT INFORMATION
  Report Type: 
  Country: None (occurrence: None)
  Receive Date: 20081212
  Receipt Date: 20080918
  Transmission Date: 20090506
  Serious: No
  Sender: FDA-Public Use
  Company Number: US-ABBOTT-08P-163-0477439-00

PATIENT
  Sex: Female
  Weight: 90.8 kg

DRUGS (5)
  1. HUMIRA [Suspect]
     Indication: RHEUMATOID ARTHRITIS
     Route: 058
     Dates: start: 20060601
  2. METHOTREXATE [Concomitant]
     Indication: RHEUMATOID ARTHRITIS
     Route: 048
     Dates: start: 20060101
  3. HYDROCHOLORQUIN [Concomitant]
     Indication: RHEUMATOID ARTHRITIS
     Route: 048
     Dates: start: 20060101
  4. CEVIMELINE HYDROCHLORIDE [Concomitant]
     Indication: SJOGREN'S SYNDROME
     Route: 048
     Dates: start: 20080101
  5. BISOPORLO/HCTZI [Concomitant]
     Indication: BLOOD PRESSURE
     Dosage: 10MG/6.25MG, 1 TABLET DAILY
     Route: 048

REACTIONS (1)
  - MENORRHAGIA [None]
